FAERS Safety Report 13580533 (Version 4)
Quarter: 2018Q1

REPORT INFORMATION
  Report Type: Spontaneous
  Country: FR (occurrence: FR)
  Receive Date: 20170525
  Receipt Date: 20180321
  Transmission Date: 20180508
  Serious: Yes (Hospitalization, Other)
  Sender: FDA-Public Use
  Company Number: FR-ROCHE-1939130

PATIENT
  Age: 54 Year
  Sex: Female
  Weight: 60 kg

DRUGS (10)
  1. ROACTEMRA [Suspect]
     Active Substance: TOCILIZUMAB
     Indication: STILL^S DISEASE
     Dosage: 480 MG
     Route: 041
     Dates: start: 20160708, end: 20160805
  2. METHOTREXATE. [Concomitant]
     Active Substance: METHOTREXATE
     Indication: STILL^S DISEASE
     Route: 065
     Dates: start: 201603
  3. ASPEGIC [Concomitant]
     Active Substance: ASPIRIN DL-LYSINE
     Route: 065
  4. CORTANCYL [Concomitant]
     Active Substance: PREDNISONE
     Route: 065
  5. XANAX [Concomitant]
     Active Substance: ALPRAZOLAM
     Route: 065
  6. PANTOPRAZOLE [Concomitant]
     Active Substance: PANTOPRAZOLE
  7. CORTANCYL [Concomitant]
     Active Substance: PREDNISONE
     Route: 065
     Dates: start: 201512
  8. ASPEGIC [Concomitant]
     Active Substance: ASPIRIN DL-LYSINE
     Route: 065
     Dates: start: 201603
  9. IOMERON [Concomitant]
     Active Substance: IOMEPROL
     Indication: COMPUTERISED TOMOGRAM ABDOMEN
     Route: 042
     Dates: start: 20160711, end: 20160711
  10. SOLU-MEDROL [Concomitant]
     Active Substance: METHYLPREDNISOLONE SODIUM SUCCINATE

REACTIONS (5)
  - Drug reaction with eosinophilia and systemic symptoms [Recovered/Resolved]
  - Herpes virus infection [Unknown]
  - Off label use [Unknown]
  - Anaphylactoid reaction [Recovered/Resolved]
  - Product use in unapproved indication [Unknown]

NARRATIVE: CASE EVENT DATE: 20160715
